FAERS Safety Report 14127655 (Version 3)
Quarter: 2018Q4

REPORT INFORMATION
  Report Type: Report from Study
  Country: US (occurrence: US)
  Receive Date: 20171026
  Receipt Date: 20181003
  Transmission Date: 20190204
  Serious: Yes (Hospitalization, Disabling, Other)
  Sender: FDA-Public Use
  Company Number: US-SHIRE-US201727128

PATIENT
  Age: 19 Year
  Sex: Male
  Weight: 90.8 kg

DRUGS (14)
  1. CYTARABINE. [Suspect]
     Active Substance: CYTARABINE
     Dosage: 161 MG, OTHER (X8)
     Route: 042
     Dates: start: 20170729
  2. THIOGUANINE [Suspect]
     Active Substance: THIOGUANINE
     Dosage: 880 MG, OTHER (PER WEEK X2)
     Route: 048
     Dates: start: 20170801
  3. VINCRISTINE [Suspect]
     Active Substance: VINCRISTINE
     Dosage: 2 MG, UNK
     Route: 042
     Dates: start: 20170809
  4. PEGASPARGASE [Suspect]
     Active Substance: PEGASPARGASE
     Indication: ACUTE LYMPHOCYTIC LEUKAEMIA
     Dosage: 5375 IU, 1X/DAY:QD
     Route: 042
     Dates: start: 20161221, end: 20170802
  5. CYTARABINE. [Suspect]
     Active Substance: CYTARABINE
     Dosage: 161 MG, OTHER (X8)
     Route: 042
     Dates: start: 20170719
  6. OLANZAPINE. [Concomitant]
     Active Substance: OLANZAPINE
     Indication: PRODUCT USED FOR UNKNOWN INDICATION
     Dosage: UNK
     Dates: start: 20170523
  7. PEGASPARGASE [Suspect]
     Active Substance: PEGASPARGASE
     Dosage: 5375 IU, UNK
     Route: 042
     Dates: start: 20170802
  8. CYCLOPHOSPHAMIDE. [Suspect]
     Active Substance: CYCLOPHOSPHAMIDE
     Indication: ACUTE LYMPHOCYTIC LEUKAEMIA
     Dosage: 2150 MG, ONE DOSE
     Route: 042
     Dates: start: 20170201
  9. CYTARABINE. [Suspect]
     Active Substance: CYTARABINE
     Indication: ACUTE LYMPHOCYTIC LEUKAEMIA
     Dosage: 161 MG X 8
     Route: 042
     Dates: start: 20170201
  10. VINCRISTINE [Suspect]
     Active Substance: VINCRISTINE
     Indication: ACUTE LYMPHOCYTIC LEUKAEMIA
     Dosage: 2 MG, UNK
     Route: 042
     Dates: start: 20161218
  11. PEGASPARGASE [Suspect]
     Active Substance: PEGASPARGASE
     Dosage: 40 MG, 2X/DAY:BID
     Route: 048
     Dates: start: 20170201
  12. RUXOLITINIB [Suspect]
     Active Substance: RUXOLITINIB
     Indication: ACUTE LYMPHOCYTIC LEUKAEMIA
     Dosage: 40 MG, 2X/DAY:BID
     Route: 048
     Dates: start: 20170201
  13. RUXOLITINIB [Suspect]
     Active Substance: RUXOLITINIB
     Dosage: 40 MG, 2X/DAY:BID
     Route: 048
     Dates: start: 20170802
  14. THIOGUANINE [Suspect]
     Active Substance: THIOGUANINE
     Indication: ACUTE LYMPHOCYTIC LEUKAEMIA
     Dosage: 880 MG, OTHER (PER WEEK X2)
     Route: 048
     Dates: start: 20170719

REACTIONS (2)
  - Febrile neutropenia [Recovered/Resolved]
  - Suicidal ideation [Recovered/Resolved]

NARRATIVE: CASE EVENT DATE: 20170804
